FAERS Safety Report 24097479 (Version 1)
Quarter: 2024Q3

REPORT INFORMATION
  Report Type: Spontaneous
  Country: FR (occurrence: FR)
  Receive Date: 20240716
  Receipt Date: 20240716
  Transmission Date: 20241016
  Serious: Yes (Life-Threatening)
  Sender: SK LIFE SCIENCE
  Company Number: None

PATIENT

DRUGS (4)
  1. XCOPRI [Suspect]
     Active Substance: CENOBAMATE
     Indication: Suicide attempt
     Dosage: UNK (28 DOSAGE FORMS)
     Route: 048
     Dates: start: 20240407, end: 20240407
  2. CLOBAZAM [Suspect]
     Active Substance: CLOBAZAM
     Indication: Suicide attempt
     Dosage: POSOLOGIE INCONNUE
     Route: 048
     Dates: start: 20240407, end: 20240407
  3. FYCOMPA [Suspect]
     Active Substance: PERAMPANEL
     Indication: Suicide attempt
     Dosage: (28 DOSAGE FORMS,1 TOTAL)
     Route: 048
     Dates: start: 20240407, end: 20240407
  4. TEGRETOL [Suspect]
     Active Substance: CARBAMAZEPINE
     Indication: Suicide attempt
     Dosage: (20 DOSAGE FORMS,1 TOTAL)
     Route: 048
     Dates: start: 20240407, end: 20240407

REACTIONS (3)
  - Overdose [Recovered/Resolved]
  - Coma [Recovered/Resolved]
  - Suicide attempt [Recovered/Resolved]

NARRATIVE: CASE EVENT DATE: 20240407
